FAERS Safety Report 7582000-6 (Version None)
Quarter: 2011Q2

REPORT INFORMATION
  Report Type: 
  Country: None (occurrence: None)
  Receive Date: 20110630
  Receipt Date: 20110623
  Transmission Date: 20111010
  Serious: Yes (Hospitalization)
  Sender: FDA-Public Use
  Company Number: US-BIOGENIDEC-2011BI023457

PATIENT
  Age: 57 Year
  Sex: Female

DRUGS (3)
  1. AVONEX [Suspect]
     Indication: MULTIPLE SCLEROSIS
     Route: 030
     Dates: start: 20030801
  2. MEDICATION NOS [Concomitant]
  3. AVONEX [Suspect]
     Route: 030
     Dates: start: 20000301, end: 20030801

REACTIONS (2)
  - CONVULSION [None]
  - ENTEROCOLITIS BACTERIAL [None]
